FAERS Safety Report 4658489-9 (Version None)
Quarter: 2005Q2

REPORT INFORMATION
  Report Type: 
  Country: None (occurrence: None)
  Receive Date: 20050511
  Receipt Date: 20050509
  Transmission Date: 20051028
  Serious: Yes (Life-Threatening)
  Sender: FDA-Public Use
  Company Number: US-BRISTOL-MYERS SQUIBB COMPANY-12960969

PATIENT
  Age: 43 Year
  Sex: Male
  Weight: 62 kg

DRUGS (6)
  1. SUSTIVA [Suspect]
     Indication: HIV INFECTION
     Dates: start: 20031208
  2. COMBIVIR [Suspect]
     Indication: HIV INFECTION
     Dosage: ^450 MG^ TWICE DAILY
     Dates: start: 20031208
  3. CELEXA [Concomitant]
     Dates: start: 20010715
  4. WELLBUTRIN [Concomitant]
     Dates: start: 20030924
  5. ZYRTEC [Concomitant]
     Dates: start: 20040701
  6. ZOFRAN [Concomitant]
     Dates: start: 20031229

REACTIONS (1)
  - LIPASE INCREASED [None]
